FAERS Safety Report 4964206-5 (Version None)
Quarter: 2006Q1

REPORT INFORMATION
  Report Type: 
  Country: None (occurrence: None)
  Receive Date: 20060331
  Receipt Date: 20060329
  Transmission Date: 20060701
  Serious: Yes (Hospitalization)
  Sender: FDA-Public Use
  Company Number: C2006-200-751

PATIENT
  Age: 88 Year
  Sex: Female
  Weight: 67.1324 kg

DRUGS (7)
  1. CEFAZOLIN [Suspect]
     Indication: PROPHYLAXIS
     Dosage: 1G, IV
     Route: 042
     Dates: start: 20051029, end: 20051031
  2. ACCUPRIL [Concomitant]
  3. COLCHICHINE [Concomitant]
  4. FOSAMAX [Concomitant]
  5. CARDIZEM CD [Concomitant]
  6. FLORINEF [Concomitant]
  7. NEMENDA [Concomitant]

REACTIONS (2)
  - DISEASE RECURRENCE [None]
  - ENDOCARDITIS STAPHYLOCOCCAL [None]
